FAERS Safety Report 8962627 (Version 1)
Quarter: 2012Q4

REPORT INFORMATION
  Report Type: Spontaneous
  Country: US (occurrence: None)
  Receive Date: 20121211
  Receipt Date: 20121211
  Transmission Date: 20130627
  Serious: Yes (Hospitalization)
  Sender: FDA-Public Use
  Company Number: None

PATIENT
  Age: 78 Year
  Sex: Female

DRUGS (6)
  1. REVLIMID 5 MG CELGENE [Suspect]
     Dosage: 5mg daily x21/28d by mouth
     Dates: start: 201207, end: 201211
  2. LOSARTAN [Concomitant]
  3. FAMOTIDINE [Concomitant]
  4. MVI [Concomitant]
  5. CA/VITAMIN D [Concomitant]
  6. ZOLPIDEM [Concomitant]

REACTIONS (2)
  - Pneumonia [None]
  - Sepsis [None]
